FAERS Safety Report 17225793 (Version 1)
Quarter: 2020Q1

REPORT INFORMATION
  Report Type: Spontaneous
  Country: US (occurrence: US)
  Receive Date: 20200102
  Receipt Date: 20200102
  Transmission Date: 20200409
  Serious: Yes (Other)
  Sender: FDA-Public Use
  Company Number: US-GLAXOSMITHKLINE-US2019GSK234033

PATIENT
  Age: 67 Year
  Sex: Female

DRUGS (7)
  1. LITHIUM CARBONATE. [Suspect]
     Active Substance: LITHIUM CARBONATE
     Indication: BIPOLAR II DISORDER
     Dosage: 600 MG, 1D
     Dates: start: 201408
  2. NORTRIPTYLINE [Suspect]
     Active Substance: NORTRIPTYLINE
     Indication: BIPOLAR II DISORDER
     Dosage: 75 MG, 1D (AT BEDTIME)
     Dates: start: 201410
  3. LITHIUM CARBONATE. [Suspect]
     Active Substance: LITHIUM CARBONATE
     Dosage: 750 MG
  4. DIVALPROEX [Concomitant]
     Active Substance: DIVALPROEX SODIUM
     Indication: BIPOLAR II DISORDER
     Dosage: 500 MG, 1D
     Dates: start: 201509, end: 201605
  5. LAMOTRIGINE. [Suspect]
     Active Substance: LAMOTRIGINE
     Indication: BIPOLAR II DISORDER
     Dosage: 25 MG
  6. NORTRIPTYLINE [Suspect]
     Active Substance: NORTRIPTYLINE
     Dosage: UNK (50-100 MG)
     Dates: end: 201507
  7. MAPROTILINE [Concomitant]
     Active Substance: MAPROTILINE
     Indication: BIPOLAR II DISORDER
     Dosage: 12.5 MG, 1D (AT MORNING)

REACTIONS (4)
  - Drug ineffective [Unknown]
  - Hypothyroidism [Recovered/Resolved]
  - Blood thyroid stimulating hormone increased [Recovered/Resolved]
  - Drug intolerance [Unknown]
